FAERS Safety Report 8532645-1 (Version None)
Quarter: 2012Q3

REPORT INFORMATION
  Report Type: 
  Country: None (occurrence: None)
  Receive Date: 20120724
  Receipt Date: 20120716
  Transmission Date: 20120928
  Serious: Yes (Life-Threatening, Hospitalization, Disabling, Other)
  Sender: FDA-Public Use
  Company Number: JP-JNJFOC-20120507225

PATIENT
  Sex: Male
  Weight: 56 kg

DRUGS (15)
  1. REMICADE [Suspect]
     Dosage: 5MG/KG
     Route: 042
     Dates: start: 20120218
  2. BETAMETHASONE SODIUM PHOSPHATE [Concomitant]
     Indication: COLITIS ULCERATIVE
     Route: 065
     Dates: start: 20110621, end: 20110710
  3. REMICADE [Suspect]
     Indication: COLITIS ULCERATIVE
     Dosage: 5MG/KG
     Route: 042
     Dates: start: 20120107
  4. PREDNISOLONE [Concomitant]
     Indication: COLITIS ULCERATIVE
     Route: 048
     Dates: start: 20110820, end: 20110912
  5. PREDNISOLONE [Concomitant]
     Route: 048
     Dates: start: 20110604, end: 20110704
  6. STEROIDS NOS [Concomitant]
     Route: 065
     Dates: start: 20110501, end: 20110708
  7. PREDNISOLONE [Concomitant]
     Route: 048
     Dates: start: 20110723, end: 20110819
  8. PREDNISOLONE [Concomitant]
     Route: 048
     Dates: start: 20110705, end: 20110722
  9. REMICADE [Suspect]
     Dosage: 5MG/KG
     Route: 042
     Dates: start: 20120414
  10. ASACOL [Concomitant]
     Indication: COLITIS ULCERATIVE
     Route: 048
     Dates: start: 20110531
  11. CEFAZOLIN SODIUM [Concomitant]
     Indication: COLITIS ULCERATIVE
     Dosage: 3 TABLETS
     Route: 048
     Dates: start: 20110604
  12. RACOL [Concomitant]
     Indication: COLITIS ULCERATIVE
     Route: 048
     Dates: start: 20110601
  13. SOLULACT [Concomitant]
     Indication: COLITIS ULCERATIVE
     Dosage: 1 TABLET
     Route: 048
     Dates: start: 20110617
  14. PREDNISOLONE [Concomitant]
     Route: 048
     Dates: start: 20110628, end: 20110705
  15. PREDNISOLONE [Concomitant]
     Route: 048
     Dates: start: 20110617, end: 20110627

REACTIONS (3)
  - PNEUMONIA MYCOPLASMAL [None]
  - PULMONARY ALVEOLAR HAEMORRHAGE [None]
  - LUNG DISORDER [None]
